FAERS Safety Report 9415013 (Version 2)
Quarter: 2013Q3

REPORT INFORMATION
  Report Type: Spontaneous
  Country: FR (occurrence: FR)
  Receive Date: 20130723
  Receipt Date: 20130815
  Transmission Date: 20140515
  Serious: Yes (Hospitalization, Other)
  Sender: FDA-Public Use
  Company Number: FR-ASTRAZENECA-2013SE50174

PATIENT
  Age: 12636 Day
  Sex: Male
  Weight: 94 kg

DRUGS (5)
  1. XEROQUEL [Suspect]
     Indication: SCHIZOPHRENIA, PARANOID TYPE
     Route: 048
     Dates: start: 20130514, end: 20130515
  2. XEROQUEL [Suspect]
     Indication: SCHIZOPHRENIA, PARANOID TYPE
     Route: 048
     Dates: start: 20130515, end: 20130611
  3. XEROQUEL [Suspect]
     Indication: SCHIZOPHRENIA, PARANOID TYPE
     Route: 048
     Dates: start: 20130611, end: 20130618
  4. DEROXAT [Suspect]
     Indication: DEPRESSIVE SYMPTOM
     Route: 048
     Dates: start: 20130326, end: 20130606
  5. CLOZAPINE [Concomitant]
     Indication: SCHIZOPHRENIA

REACTIONS (2)
  - Mania [Not Recovered/Not Resolved]
  - Delusion [Not Recovered/Not Resolved]
